FAERS Safety Report 20059409 (Version 1)
Quarter: 2021Q4

REPORT INFORMATION
  Report Type: Report from Study
  Country: DE (occurrence: DE)
  Receive Date: 20211111
  Receipt Date: 20211111
  Transmission Date: 20220303
  Serious: Yes (Other)
  Sender: FDA-Public Use
  Company Number: DE-TAKEDA-2021TUS067804

PATIENT
  Age: 44 Year
  Sex: Male

DRUGS (31)
  1. ANTIHEMOPHILIC FACTOR, PEGYLATED (MW 20000) HUMAN SEQUENCE RECOMBINANT [Suspect]
     Active Substance: ANTIHEMOPHILIC FACTOR, PEGYLATED (MW 20000) HUMAN SEQUENCE RECOMBINANT
     Indication: Prophylaxis
     Dosage: 2000 INTERNATIONAL UNIT, Q72H
     Route: 065
     Dates: start: 20210409
  2. ANTIHEMOPHILIC FACTOR, PEGYLATED (MW 20000) HUMAN SEQUENCE RECOMBINANT [Suspect]
     Active Substance: ANTIHEMOPHILIC FACTOR, PEGYLATED (MW 20000) HUMAN SEQUENCE RECOMBINANT
     Indication: Prophylaxis
     Dosage: 2000 INTERNATIONAL UNIT, Q72H
     Route: 065
     Dates: start: 20210409
  3. ANTIHEMOPHILIC FACTOR, PEGYLATED (MW 20000) HUMAN SEQUENCE RECOMBINANT [Suspect]
     Active Substance: ANTIHEMOPHILIC FACTOR, PEGYLATED (MW 20000) HUMAN SEQUENCE RECOMBINANT
     Indication: Prophylaxis
     Dosage: 2000 INTERNATIONAL UNIT, Q72H
     Route: 065
     Dates: start: 20210409
  4. AZULFIDINE [Concomitant]
     Active Substance: SULFASALAZINE
     Indication: Rheumatoid arthritis
     Dosage: 500 MILLIGRAM
     Route: 048
     Dates: start: 20090217, end: 202106
  5. AZULFIDINE [Concomitant]
     Active Substance: SULFASALAZINE
     Dosage: 50 UNK
     Route: 048
     Dates: start: 201803
  6. ARCOXIA [Concomitant]
     Active Substance: ETORICOXIB
     Indication: Arthropathy
     Dosage: 60 MICROGRAM, PRN
     Route: 048
     Dates: start: 20050902
  7. CLOPIDOGREL BISULFATE [Concomitant]
     Active Substance: CLOPIDOGREL BISULFATE
     Indication: Myocardial infarction
     Dosage: 75 MICROGRAM
     Route: 048
     Dates: start: 20150327
  8. CLOPIDOGREL BISULFATE [Concomitant]
     Active Substance: CLOPIDOGREL BISULFATE
     Indication: Stent placement
  9. METOPROLOL SUCCINATE [Concomitant]
     Active Substance: METOPROLOL SUCCINATE
     Indication: Coronary artery disease
     Dosage: 48 MILLIGRAM, BID
     Route: 048
     Dates: start: 20150327, end: 20180101
  10. METOPROLOL SUCCINATE [Concomitant]
     Active Substance: METOPROLOL SUCCINATE
     Indication: Myocardial infarction
  11. RAMIPRIL [Concomitant]
     Active Substance: RAMIPRIL
     Indication: Coronary artery disease
     Dosage: 5 MILLIGRAM, QD
     Route: 048
     Dates: start: 20150327
  12. RAMIPRIL [Concomitant]
     Active Substance: RAMIPRIL
     Indication: Myocardial infarction
  13. ATORVASTATIN [Concomitant]
     Active Substance: ATORVASTATIN
     Indication: Coronary artery disease
     Dosage: 20 MICROGRAM, QD
     Dates: start: 20150327, end: 201605
  14. ATORVASTATIN [Concomitant]
     Active Substance: ATORVASTATIN
     Indication: Myocardial infarction
  15. NITROGLYCERIN [Concomitant]
     Active Substance: NITROGLYCERIN
     Indication: Coronary artery disease
     Dosage: UNK, PRN
     Route: 060
     Dates: start: 20150327
  16. NITROGLYCERIN [Concomitant]
     Active Substance: NITROGLYCERIN
     Indication: Myocardial infarction
  17. ASPIRIN [Concomitant]
     Active Substance: ASPIRIN
     Indication: Myocardial infarction
     Dosage: 100 MILLIGRAM, QD
     Route: 048
     Dates: start: 20150327, end: 20150429
  18. ASPIRIN [Concomitant]
     Active Substance: ASPIRIN
     Indication: Stent placement
  19. CLARITHROMYCIN [Concomitant]
     Active Substance: CLARITHROMYCIN
     Indication: Infection
     Dosage: 500 MICROGRAM, BID
     Route: 048
     Dates: start: 20150315, end: 20150326
  20. TRANEXAMIC ACID [Concomitant]
     Active Substance: TRANEXAMIC ACID
     Indication: Haemorrhage prophylaxis
     Dosage: 500 MILLIGRAM, PRN
     Route: 048
     Dates: start: 2012
  21. CELECOXIB [Concomitant]
     Active Substance: CELECOXIB
     Indication: Analgesic therapy
     Dosage: 100 MILLIGRAM, PRN
     Route: 048
     Dates: start: 202101
  22. PRAVASTATIN [Concomitant]
     Active Substance: PRAVASTATIN
     Indication: Coronary artery disease
     Dosage: 400 MILLIGRAM, QD
     Dates: start: 201605, end: 202010
  23. PRAVASTATIN [Concomitant]
     Active Substance: PRAVASTATIN
     Indication: Myocardial infarction
  24. GABAPENTIN [Concomitant]
     Active Substance: GABAPENTIN
     Indication: Product used for unknown indication
     Dosage: UNK UNK, TID
     Route: 048
     Dates: start: 201810, end: 201903
  25. FENOFIBRATE [Concomitant]
     Active Substance: FENOFIBRATE
     Indication: Coronary artery disease
     Dosage: UNK UNK, QD
     Route: 048
     Dates: start: 202010, end: 202102
  26. FENOFIBRATE [Concomitant]
     Active Substance: FENOFIBRATE
     Indication: Myocardial infarction
  27. METHOTREXATE [Concomitant]
     Active Substance: METHOTREXATE
     Dosage: 20 MILLIGRAM, 1/WEEK
     Route: 058
     Dates: start: 202001, end: 20210604
  28. PREDNISOLONE [Concomitant]
     Active Substance: PREDNISOLONE
     Indication: Rheumatic disorder
     Dosage: 5 MILLIGRAM, QD
     Route: 048
     Dates: start: 201912
  29. CHOLECALCIFEROL [Concomitant]
     Active Substance: CHOLECALCIFEROL
     Indication: Rheumatic disorder
     Dosage: UNK UNK, QD
     Route: 048
     Dates: start: 202001
  30. FOLIC ACID [Concomitant]
     Active Substance: FOLIC ACID
     Indication: Product used for unknown indication
     Dosage: 5 MICROGRAM, QD
     Route: 048
     Dates: start: 202001, end: 202106
  31. TAMSULOSIN [Concomitant]
     Active Substance: TAMSULOSIN
     Indication: Urethral stenosis
     Dosage: UNK UNK, QD
     Route: 048
     Dates: start: 202103

REACTIONS (1)
  - Urethral stenosis [Recovered/Resolved]
